FAERS Safety Report 8895430 (Version 2)
Quarter: 2012Q4

REPORT INFORMATION
  Report Type: 
  Country: US (occurrence: US)
  Receive Date: 20121108
  Receipt Date: 20121221
  Transmission Date: 20130627
  Serious: Yes (Death, Hospitalization)
  Sender: FDA-Public Use
  Company Number: US-BAXTER-2012BAX022555

PATIENT
  Age: 88 Year
  Sex: Male

DRUGS (1)
  1. DIANEAL LOW CALCIUM [Suspect]
     Indication: PERITONEAL DIALYSIS
     Route: 033
     Dates: end: 20121218

REACTIONS (3)
  - Death [Fatal]
  - Heart rate irregular [Not Recovered/Not Resolved]
  - Hypotension [Not Recovered/Not Resolved]
